FAERS Safety Report 9646248 (Version 1)
Quarter: 2013Q4

REPORT INFORMATION
  Report Type: Spontaneous
  Country: FR (occurrence: None)
  Receive Date: 20131024
  Receipt Date: 20131024
  Transmission Date: 20140711
  Serious: Yes (Hospitalization)
  Sender: FDA-Public Use
  Company Number: 1922674

PATIENT
  Age: 64 Year
  Sex: Female

DRUGS (7)
  1. CARBOPLATIN [Suspect]
     Indication: OVARIAN CANCER
     Route: 042
     Dates: start: 20110713, end: 20110713
  2. POLARAMINE [Concomitant]
  3. PACLITAXEL EBEWE [Concomitant]
  4. ZOPHREN [Concomitant]
  5. AZANTAC [Concomitant]
  6. AVASTIN [Concomitant]
  7. METHYLPREDNISOLONE MERCK [Concomitant]

REACTIONS (7)
  - Hyperhidrosis [None]
  - Hot flush [None]
  - Pharyngeal erythema [None]
  - Malaise [None]
  - Loss of consciousness [None]
  - Anuria [None]
  - Injection related reaction [None]
